FAERS Safety Report 4917270-3 (Version None)
Quarter: 2006Q1

REPORT INFORMATION
  Report Type: 
  Country: None (occurrence: None)
  Receive Date: 20060221
  Receipt Date: 20050706
  Transmission Date: 20060701
  Serious: Yes (Hospitalization)
  Sender: FDA-Public Use
  Company Number: US-MERCK-0507USA00941

PATIENT
  Age: 81 Year
  Sex: Male

DRUGS (1)
  1. VIOXX [Suspect]
     Indication: BLOOD PRESSURE
     Route: 048
     Dates: start: 20031201, end: 20040422

REACTIONS (2)
  - CEREBROVASCULAR ACCIDENT [None]
  - INJURY [None]
